FAERS Safety Report 8877673 (Version 1)
Quarter: 2012Q4

REPORT INFORMATION
  Report Type: 
  Country: BR (occurrence: BR)
  Receive Date: 20121024
  Receipt Date: 20121024
  Transmission Date: 20130627
  Serious: Yes (Other)
  Sender: FDA-Public Use
  Company Number: BR-ROCHE-1147875

PATIENT
  Sex: Male
  Weight: 75 kg

DRUGS (8)
  1. RIVOTRIL [Suspect]
     Indication: DEPRESSION
     Route: 065
  2. RIVOTRIL [Suspect]
     Route: 065
     Dates: start: 200802
  3. SIFROL [Suspect]
     Indication: DEMENTIA ALZHEIMER^S TYPE
     Route: 065
  4. SIFROL [Suspect]
     Indication: RESTLESS LEGS SYNDROME
  5. LEXAPRO [Concomitant]
     Indication: DEPRESSION
     Route: 065
  6. PREDNISONE [Concomitant]
     Indication: MUSCULOSKELETAL PAIN
     Route: 065
  7. CARVEDILOL [Concomitant]
     Indication: HYPERTENSION
     Route: 065
  8. VICOG [Concomitant]
     Indication: LABYRINTHITIS
     Route: 065

REACTIONS (5)
  - Coordination abnormal [Not Recovered/Not Resolved]
  - Restless legs syndrome [Not Recovered/Not Resolved]
  - Disturbance in attention [Not Recovered/Not Resolved]
  - Renal failure [Unknown]
  - Hypersensitivity [Unknown]
